FAERS Safety Report 7627592-3 (Version None)
Quarter: 2011Q3

REPORT INFORMATION
  Report Type: 
  Country: None (occurrence: None)
  Receive Date: 20110713
  Receipt Date: 20110701
  Transmission Date: 20111222
  Serious: Yes (Other)
  Sender: FDA-Public Use
  Company Number: 1000022024

PATIENT
  Age: 28 Year
  Sex: Female
  Weight: 94 kg

DRUGS (4)
  1. ALPRAZOLAM [Concomitant]
  2. FOLIO FORTE (FOLIC ACID) (FOLIC ACID) [Concomitant]
  3. PAROXETINE HYDROCHLORIDE [Suspect]
     Indication: ANXIETY DISORDER
     Dosage: 10 MG (10 MG, 1 IN 1 D), ORAL
     Route: 048
     Dates: start: 20090527
  4. CITALOPRAM HYDROBROMIDE [Suspect]
     Indication: DEPRESSION
     Dosage: 15 MG (15 MG, 1 IN 1 D), ORAL
     Route: 048

REACTIONS (3)
  - MATERNAL EXPOSURE DURING PREGNANCY [None]
  - PRE-ECLAMPSIA [None]
  - PREGNANCY [None]
